FAERS Safety Report 10041564 (Version 2)
Quarter: 2022Q2

REPORT INFORMATION
  Report Type: Spontaneous
  Country: CA (occurrence: CA)
  Receive Date: 20140327
  Receipt Date: 20220627
  Transmission Date: 20220721
  Serious: Yes (Other)
  Sender: FDA-Public Use
  Company Number: CA-PFIZER INC-2014084840

PATIENT
  Age: 62 Year
  Sex: Female

DRUGS (13)
  1. LIPITOR [Suspect]
     Active Substance: ATORVASTATIN CALCIUM
     Dosage: 10 MG, DAILY
     Route: 048
  2. ACTEMRA [Suspect]
     Active Substance: TOCILIZUMAB
     Indication: Rheumatoid arthritis
     Dosage: 628.8 MG, UNK
     Dates: start: 20100930
  3. RYTHMOL [Suspect]
     Active Substance: PROPAFENONE HYDROCHLORIDE
     Dosage: UNK
  4. SOTALOL [Concomitant]
     Active Substance: SOTALOL
     Dosage: 80 MG, UNK
  5. FLOVENT [Concomitant]
     Active Substance: FLUTICASONE PROPIONATE
     Dosage: 1 PUFF, DAILY
  6. SINGULAIR [Concomitant]
     Active Substance: MONTELUKAST SODIUM
     Dosage: 1 DF, DAILY
     Route: 048
  7. VITAMINS [Concomitant]
     Active Substance: VITAMINS
     Dosage: 1 DF, DAILY
     Route: 048
  8. FOLIC ACID [Concomitant]
     Active Substance: FOLIC ACID
     Dosage: 1 MG, DAILY
     Route: 048
  9. CALCIUM\VITAMIN D [Concomitant]
     Active Substance: CALCIUM\VITAMIN D
     Dosage: 1 DF, DAILY
     Route: 048
  10. METHOTREXATE [Concomitant]
     Active Substance: METHOTREXATE
     Dosage: 10 MG, WEEKLY
     Route: 058
  11. PREDNISONE [Concomitant]
     Active Substance: PREDNISONE
     Dosage: 5 MG, DAILY
     Route: 048
  12. TYLENOL [Concomitant]
     Active Substance: ACETAMINOPHEN
     Dosage: 500 MG, AS NEEDED
     Route: 048
  13. DIOVAN [Concomitant]
     Active Substance: VALSARTAN
     Dosage: UNK

REACTIONS (2)
  - Haematochezia [Not Recovered/Not Resolved]
  - Abdominal discomfort [Unknown]
